FAERS Safety Report 23109007 (Version 1)
Quarter: 2023Q4

REPORT INFORMATION
  Report Type: Spontaneous
  Country: US (occurrence: None)
  Receive Date: 20231024
  Receipt Date: 20231024
  Transmission Date: 20240109
  Serious: Yes (Hospitalization)
  Sender: FDA-Public Use
  Company Number: None

PATIENT
  Age: 96 Year
  Sex: Female
  Weight: 58.9 kg

DRUGS (1)
  1. DEXTROMETHORPHAN HYDROBROMIDE\GUAIFENESIN [Suspect]
     Active Substance: DEXTROMETHORPHAN HYDROBROMIDE\GUAIFENESIN
     Dosage: STRENGTH:; 10/MG; 100MG/5ML
     Dates: start: 20210206, end: 20230214

REACTIONS (3)
  - Confusional state [None]
  - Sedation [None]
  - Mental status changes [None]

NARRATIVE: CASE EVENT DATE: 20230210
